FAERS Safety Report 14993539 (Version 1)
Quarter: 2018Q2

REPORT INFORMATION
  Report Type: Spontaneous
  Country: ES (occurrence: ES)
  Receive Date: 20180611
  Receipt Date: 20180611
  Transmission Date: 20180711
  Serious: Yes (Hospitalization, Other)
  Sender: FDA-Public Use
  Company Number: ES-AUROBINDO-AUR-APL-2018-030109

PATIENT
  Age: 10 Year
  Sex: Female

DRUGS (1)
  1. IBUPROFEN. [Suspect]
     Active Substance: IBUPROFEN
     Indication: PYREXIA

REACTIONS (8)
  - Rash maculo-papular [Unknown]
  - Visual acuity reduced [Unknown]
  - Corneal leukoma [Unknown]
  - Conjunctival hyperaemia [Unknown]
  - Dry eye [Unknown]
  - Oral mucosal erythema [Unknown]
  - Pyrexia [Unknown]
  - Photophobia [Unknown]
